FAERS Safety Report 12850850 (Version 2)
Quarter: 2016Q4

REPORT INFORMATION
  Report Type: Report from Study
  Country: GB (occurrence: GB)
  Receive Date: 20161014
  Receipt Date: 20161024
  Transmission Date: 20170207
  Serious: Yes (Hospitalization)
  Sender: FDA-Public Use
  Company Number: GB-ASTRAZENECA-2016SF08427

PATIENT
  Age: 76 Year
  Sex: Female

DRUGS (7)
  1. CLOPIDOGREL [Concomitant]
     Active Substance: CLOPIDOGREL BISULFATE
     Dates: start: 2014
  2. METFORMIN [Concomitant]
     Active Substance: METFORMIN HYDROCHLORIDE
     Dates: start: 1988
  3. VANDETANIB. [Suspect]
     Active Substance: VANDETANIB
     Indication: BREAST CANCER METASTATIC
     Route: 048
     Dates: end: 20160930
  4. AMITRIPTYLINE [Concomitant]
     Active Substance: AMITRIPTYLINE
     Dates: start: 1985
  5. CANDESARTAN [Concomitant]
     Active Substance: CANDESARTAN
     Dates: start: 2014
  6. FULVESTRANT [Suspect]
     Active Substance: FULVESTRANT
     Indication: BREAST CANCER METASTATIC
     Route: 030
     Dates: start: 20160610
  7. VANDETANIB. [Suspect]
     Active Substance: VANDETANIB
     Indication: BREAST CANCER METASTATIC
     Route: 048
     Dates: start: 20160610, end: 20160725

REACTIONS (2)
  - Fatigue [Recovered/Resolved]
  - Confusional state [Recovered/Resolved]

NARRATIVE: CASE EVENT DATE: 20160725
